FAERS Safety Report 11222934 (Version 2)
Quarter: 2015Q3

REPORT INFORMATION
  Report Type: Spontaneous
  Country: JP (occurrence: JP)
  Receive Date: 20150626
  Receipt Date: 20150717
  Transmission Date: 20151125
  Serious: Yes (Life-Threatening)
  Sender: FDA-Public Use
  Company Number: JP-GE HEALTHCARE MEDICAL DIAGNOSTICS-OMPQ-PR-1506S-0998

PATIENT
  Age: 85 Year
  Sex: Female
  Weight: 55 kg

DRUGS (13)
  1. WARFARIN [Concomitant]
     Active Substance: WARFARIN
  2. ALLOPURINOL. [Concomitant]
     Active Substance: ALLOPURINOL
  3. ALDACTONE [Concomitant]
     Active Substance: SPIRONOLACTONE
  4. OMNIPAQUE [Suspect]
     Active Substance: IOHEXOL
     Indication: PRODUCT USED FOR UNKNOWN INDICATION
     Dosage: DOSE NOT REPORTED
     Route: 042
     Dates: start: 20150611, end: 20150611
  5. ADALAT [Concomitant]
     Active Substance: NIFEDIPINE
  6. GASTER [Concomitant]
     Active Substance: FAMOTIDINE
  7. CELECOX [Concomitant]
     Active Substance: CELECOXIB
  8. HALFDIGOXIN [Concomitant]
     Active Substance: DIGOXIN
  9. INFREE S [Concomitant]
  10. DEZOLAM [Concomitant]
     Active Substance: ETIZOLAM
  11. OMNIPAQUE [Suspect]
     Active Substance: IOHEXOL
     Indication: DIAGNOSTIC PROCEDURE
  12. BAYASPIRIN [Concomitant]
     Active Substance: ASPIRIN
  13. LASIX [Concomitant]
     Active Substance: FUROSEMIDE

REACTIONS (2)
  - Blood pressure decreased [Recovered/Resolved]
  - Anaphylactic shock [Recovered/Resolved]

NARRATIVE: CASE EVENT DATE: 20150611
